FAERS Safety Report 25360966 (Version 1)
Quarter: 2025Q2

REPORT INFORMATION
  Report Type: Spontaneous
  Country: ES (occurrence: ES)
  Receive Date: 20250527
  Receipt Date: 20250527
  Transmission Date: 20250717
  Serious: Yes (Life-Threatening, Hospitalization)
  Sender: RANBAXY
  Company Number: ES-AEMPS-1638720

PATIENT
  Age: 43 Year
  Sex: Male
  Weight: 98 kg

DRUGS (2)
  1. TEMOZOLOMIDE [Suspect]
     Active Substance: TEMOZOLOMIDE
     Indication: Medulloblastoma recurrent
     Dosage: 5-DAY CYCLES. 1ST CYCLE WITH 300MG DAILY (10/17-22/10), NEXT TWO CYCLES WITH 360 MG DAILY. SHE HAS R
     Route: 048
     Dates: start: 20241017, end: 20241022
  2. TEMOZOLOMIDE [Suspect]
     Active Substance: TEMOZOLOMIDE
     Dosage: 360 MILLIGRAM, DAILY, HE HAS RECEIVED A TOTAL OF 3 CYCLES.
     Route: 048
     Dates: start: 20250115, end: 20250120

REACTIONS (2)
  - Septic shock [Recovered/Resolved]
  - Urinary tract infection [Recovered/Resolved]

NARRATIVE: CASE EVENT DATE: 20250120
